FAERS Safety Report 7472375-0 (Version None)
Quarter: 2011Q1

REPORT INFORMATION
  Report Type: 
  Country: None (occurrence: None)
  Receive Date: 20110302
  Receipt Date: 20100812
  Transmission Date: 20110831
  Serious: Yes (Disabling)
  Sender: FDA-Public Use
  Company Number: 163-21880-10060945

PATIENT
  Age: 70 Year
  Sex: Female

DRUGS (2)
  1. REVLIMID [Suspect]
     Indication: LYMPHATIC DISORDER
     Dosage: 10 MG, 1 IN 1 D, PO; 5 MG, 1 IN 1 D, PO
     Route: 048
     Dates: start: 20100506, end: 20100101
  2. REVLIMID [Suspect]
     Indication: LYMPHATIC DISORDER
     Dosage: 10 MG, 1 IN 1 D, PO; 5 MG, 1 IN 1 D, PO
     Route: 048
     Dates: start: 20100701

REACTIONS (16)
  - PAIN [None]
  - ARTHRALGIA [None]
  - ABASIA [None]
  - CHILLS [None]
  - MALAISE [None]
  - DECREASED APPETITE [None]
  - WEIGHT [None]
  - MYALGIA [None]
  - ABDOMINAL PAIN UPPER [None]
  - RASH [None]
  - ASTHENIA [None]
  - LOSS OF LIBIDO [None]
  - NIGHT SWEATS [None]
  - WEIGHT DECREASED [None]
  - COUGH [None]
  - BACK PAIN [None]
